FAERS Safety Report 6046565-8 (Version None)
Quarter: 2009Q1

REPORT INFORMATION
  Report Type: 
  Country: None (occurrence: None)
  Receive Date: 20090122
  Receipt Date: 20090112
  Transmission Date: 20090719
  Serious: Yes (Other)
  Sender: FDA-Public Use
  Company Number: PHEH2009US00801

PATIENT

DRUGS (2)
  1. GENTEAL GEL (NVO) [Suspect]
     Dosage: UNK
     Dates: start: 20071001
  2. GENTEAL PM LUBRICANT EYE OINTMENT [Suspect]
     Dosage: UNK
     Dates: start: 20090110

REACTIONS (8)
  - BLINDNESS [None]
  - DRUG ADMINISTRATION ERROR [None]
  - EYE PAIN [None]
  - INCORRECT DOSE ADMINISTERED [None]
  - MACULOPATHY [None]
  - MYOPIA [None]
  - ULCERATIVE KERATITIS [None]
  - WRONG DRUG ADMINISTERED [None]
